FAERS Safety Report 12669324 (Version 2)
Quarter: 2016Q3

REPORT INFORMATION
  Report Type: Spontaneous
  Country: US (occurrence: US)
  Receive Date: 20160819
  Receipt Date: 20160922
  Transmission Date: 20161109
  Serious: Yes (Other)
  Sender: FDA-Public Use
  Company Number: US-PFIZER INC-2016388977

PATIENT
  Age: 55 Year
  Sex: Female
  Weight: 63.5 kg

DRUGS (1)
  1. LYRICA [Suspect]
     Active Substance: PREGABALIN
     Indication: NEUROPATHY PERIPHERAL
     Dosage: UNK UNK, 1X/DAY
     Route: 048

REACTIONS (5)
  - Loss of consciousness [Unknown]
  - Alcohol interaction [Unknown]
  - Intentional product misuse [Unknown]
  - Alcohol poisoning [Unknown]
  - Amnesia [Unknown]

NARRATIVE: CASE EVENT DATE: 201607
